FAERS Safety Report 8129563 (Version 5)
Quarter: 2018Q1

REPORT INFORMATION
  Report Type: Report from Study
  Country: GB (occurrence: GB)
  Receive Date: 20110909
  Receipt Date: 20180130
  Transmission Date: 20180509
  Serious: Yes (Life-Threatening, Hospitalization, Other)
  Sender: FDA-Public Use
  Company Number: GB-BRISTOL-MYERS SQUIBB COMPANY-16001778

PATIENT
  Age: 77 Year
  Sex: Male
  Weight: 86.7 kg

DRUGS (6)
  1. ASPIRIN. [Suspect]
     Active Substance: ASPIRIN
     Indication: TRANSIENT ISCHAEMIC ATTACK
     Dosage: 300 MG, QD
     Route: 048
     Dates: start: 20110816
  2. SIMVASTATIN. [Concomitant]
     Active Substance: SIMVASTATIN
     Indication: BLOOD CHOLESTEROL DECREASED
     Dosage: 10 MG, QD
     Route: 048
     Dates: start: 2007
  3. DASATINIB. [Suspect]
     Active Substance: DASATINIB
     Indication: CHRONIC MYELOID LEUKAEMIA
     Dosage: DISCONTINUED ON 30AUG2011
     Route: 048
     Dates: start: 20110810, end: 20110919
  4. RAMIPRIL. [Concomitant]
     Active Substance: RAMIPRIL
     Indication: HYPOTENSION
     Dosage: 1.25 MG, QD
     Route: 048
     Dates: start: 2011
  5. ALLOPURINOL. [Concomitant]
     Active Substance: ALLOPURINOL
     Indication: CHRONIC MYELOID LEUKAEMIA
     Dosage: JUL11
     Route: 048
     Dates: start: 2011
  6. RANITIDINE. [Concomitant]
     Active Substance: RANITIDINE
     Indication: HYPERSENSITIVITY
     Dosage: 10 MG, PRN
     Route: 048

REACTIONS (6)
  - Multiple organ dysfunction syndrome [Recovering/Resolving]
  - Gastrointestinal haemorrhage [Recovering/Resolving]
  - Pericarditis [Recovering/Resolving]
  - Pleural effusion [Recovering/Resolving]
  - Cardiac tamponade [Recovered/Resolved]
  - Pericardial effusion [Recovering/Resolving]

NARRATIVE: CASE EVENT DATE: 201108
